FAERS Safety Report 23858484 (Version 2)
Quarter: 2024Q2

REPORT INFORMATION
  Report Type: Spontaneous
  Country: FR (occurrence: FR)
  Receive Date: 20240515
  Receipt Date: 20240529
  Transmission Date: 20240715
  Serious: Yes (Hospitalization, Other)
  Sender: FDA-Public Use
  Company Number: FR-009507513-2405FRA003527

PATIENT
  Age: 55 Year
  Sex: Male
  Weight: 90 kg

DRUGS (2)
  1. DELSTRIGO [Suspect]
     Active Substance: DORAVIRINE\LAMIVUDINE\TENOFOVIR DISOPROXIL FUMARATE
     Indication: HIV infection
     Dosage: 1 DOSAGE FORM, QD
     Route: 048
     Dates: start: 20231018, end: 20231218
  2. AMITRIPTYLINE [Concomitant]
     Active Substance: AMITRIPTYLINE
     Indication: Poor quality sleep
     Dosage: 40 MG/ML, 5 DROPS, QD
     Route: 048
     Dates: end: 20240104

REACTIONS (4)
  - Hepatic cytolysis [Recovering/Resolving]
  - Steatohepatitis [Unknown]
  - Hepatic fibrosis [Unknown]
  - Vanishing bile duct syndrome [Unknown]

NARRATIVE: CASE EVENT DATE: 20230101
